FAERS Safety Report 8553033-8 (Version None)
Quarter: 2012Q3

REPORT INFORMATION
  Report Type: 
  Country: None (occurrence: None)
  Receive Date: 20120731
  Receipt Date: 20120726
  Transmission Date: 20120928
  Serious: Yes (Hospitalization)
  Sender: FDA-Public Use
  Company Number: US-SANOFI-AVENTIS-2012SA053144

PATIENT
  Age: 87 Year
  Sex: Male

DRUGS (2)
  1. LOVENOX [Suspect]
     Dates: start: 20120101, end: 20120601
  2. LOVENOX [Suspect]
     Indication: THROMBOSIS PROPHYLAXIS
     Dates: start: 20100101, end: 20120101

REACTIONS (2)
  - INTRA-ABDOMINAL HAEMORRHAGE [None]
  - GASTROINTESTINAL DISORDER [None]
